FAERS Safety Report 5087810-5 (Version None)
Quarter: 2006Q3

REPORT INFORMATION
  Report Type: 
  Country: None (occurrence: None)
  Receive Date: 20060824
  Receipt Date: 20060731
  Transmission Date: 20061208
  Serious: No
  Sender: FDA-Public Use
  Company Number: PHMT2006CA01610

PATIENT
  Sex: Male

DRUGS (2)
  1. ZOMETA [Suspect]
     Route: 042
  2. CHEMOTHERAPEUTICS,OTHER [Concomitant]

REACTIONS (1)
  - INFECTION [None]
